FAERS Safety Report 6663829-5 (Version None)
Quarter: 2010Q2

REPORT INFORMATION
  Report Type: 
  Country: None (occurrence: None)
  Receive Date: 20100401
  Receipt Date: 20100326
  Transmission Date: 20101027
  Serious: Yes (Other)
  Sender: FDA-Public Use
  Company Number: US-GENENTECH-299724

PATIENT
  Sex: Female

DRUGS (5)
  1. RITUXAN [Suspect]
     Indication: B-CELL LYMPHOMA
  2. CYTOXAN [Concomitant]
     Indication: B-CELL LYMPHOMA
  3. ADRIAMYCIN PFS [Concomitant]
     Indication: B-CELL LYMPHOMA
  4. VINCRISTINE [Concomitant]
     Indication: B-CELL LYMPHOMA
  5. PREDNISONE [Concomitant]
     Indication: B-CELL LYMPHOMA

REACTIONS (1)
  - LEUKOENCEPHALOPATHY [None]
